FAERS Safety Report 9055052 (Version 1)
Quarter: 2013Q1

REPORT INFORMATION
  Report Type: Report from Study
  Country: CA (occurrence: CA)
  Receive Date: 20130206
  Receipt Date: 20130206
  Transmission Date: 20140127
  Serious: Yes (Other)
  Sender: FDA-Public Use
  Company Number: CA-JNJFOC-20130113296

PATIENT
  Age: 69 None
  Sex: Female
  Weight: 84.5 kg

DRUGS (10)
  1. REMICADE [Suspect]
     Indication: RHEUMATOID ARTHRITIS
     Route: 042
     Dates: start: 20060802
  2. CALCIUM [Concomitant]
     Route: 048
  3. EURO FOLIC [Concomitant]
     Route: 048
  4. PREDNISONE [Concomitant]
     Route: 048
  5. CELEBREX [Concomitant]
     Route: 048
  6. VITALUX AREDS [Concomitant]
     Route: 048
  7. NEXIUM [Concomitant]
     Route: 048
  8. FOSAVANCE [Concomitant]
     Route: 048
  9. METHOTREXATE [Concomitant]
     Route: 058
  10. ALL OTHER THERAPEUTIC PRODUCTS [Concomitant]
     Route: 065

REACTIONS (3)
  - Dyspnoea [Unknown]
  - Pyrexia [Unknown]
  - Productive cough [Unknown]
